FAERS Safety Report 8459739 (Version 2)
Quarter: 2014Q2

REPORT INFORMATION
  Report Type: Spontaneous
  Country: US (occurrence: US)
  Receive Date: 20120314
  Receipt Date: 20140401
  Transmission Date: 20141212
  Serious: No
  Sender: FDA-Public Use
  Company Number: US-ASTRAZENECA-2012SE12152

PATIENT
  Age: 57 Year
  Sex: Male
  Weight: 88.5 kg

DRUGS (6)
  1. TOPROL XL [Suspect]
     Indication: SUPRAVENTRICULAR TACHYCARDIA
     Route: 048
  2. TOPROL XL [Suspect]
     Indication: TACHYCARDIA
     Route: 048
  3. TOPROL XL [Suspect]
     Indication: BLOOD PRESSURE ABNORMAL
     Route: 048
  4. KLONOPIN [Concomitant]
     Indication: ANXIETY
  5. KLONOPIN [Concomitant]
     Indication: MUSCLE SPASMS
  6. SINUS MEDICATION [Concomitant]
     Indication: NASOPHARYNGITIS

REACTIONS (4)
  - Influenza [Unknown]
  - Nasopharyngitis [Unknown]
  - Supraventricular tachycardia [Unknown]
  - Drug effect incomplete [Unknown]
